FAERS Safety Report 11871963 (Version 1)
Quarter: 2015Q4

REPORT INFORMATION
  Report Type: Spontaneous
  Country: FR (occurrence: FR)
  Receive Date: 20151228
  Receipt Date: 20151228
  Transmission Date: 20160305
  Serious: Yes (Hospitalization)
  Sender: FDA-Public Use
  Company Number: FR-SA-2015SA215105

PATIENT
  Age: 56 Year
  Sex: Male

DRUGS (13)
  1. CALCIUM LEVOFOLINATE [Concomitant]
     Active Substance: LEVOLEUCOVORIN CALCIUM
     Indication: ADENOCARCINOMA PANCREAS
     Dosage: 338 MG AT EACH COURSE
     Route: 042
     Dates: start: 201505
  2. OXALIPLATIN. [Suspect]
     Active Substance: OXALIPLATIN
     Indication: ADENOCARCINOMA PANCREAS
     Dosage: 85 MG/M2, 1 INJECTION IN 2 WEEKS
     Route: 042
     Dates: start: 201505
  3. IRINOTECAN [Concomitant]
     Active Substance: IRINOTECAN
     Indication: ADENOCARCINOMA PANCREAS
     Dosage: 300 MG AT EACH COURSE
     Route: 042
     Dates: start: 201505
  4. METFORMIN [Concomitant]
     Active Substance: METFORMIN HYDROCHLORIDE
     Dosage: USUAL TREATMENT
     Route: 065
  5. ONDANSETRON [Concomitant]
     Active Substance: ONDANSETRON
     Indication: ADENOCARCINOMA PANCREAS
     Dosage: 8 MG AT EACH COURSE
     Route: 042
     Dates: start: 201505
  6. SOLUPRED [Suspect]
     Active Substance: PREDNISOLONE
     Indication: ADENOCARCINOMA PANCREAS
     Route: 048
     Dates: start: 201505
  7. 5-FU [Concomitant]
     Active Substance: FLUOROURACIL
     Indication: ADENOCARCINOMA PANCREAS
     Dosage: ONE BOLUS OF 675 MG THEN IN CONTINUOUS WITHIN 44 HOURS / 4050 MG
     Route: 040
     Dates: start: 201505
  8. EMEND [Concomitant]
     Active Substance: APREPITANT
     Indication: ADENOCARCINOMA PANCREAS
     Dosage: 125 MG AT EACH COURSE
     Route: 042
     Dates: start: 201505
  9. ATROPINE. [Concomitant]
     Active Substance: ATROPINE
     Indication: ADENOCARCINOMA PANCREAS
     Dosage: 0.25 MG AT EACH COURSE
     Route: 042
     Dates: start: 201505
  10. METHYLPREDNISOLONE. [Suspect]
     Active Substance: METHYLPREDNISOLONE
     Indication: ADENOCARCINOMA PANCREAS
     Dosage: 1 INJECTION IN 2 WEEKS
     Route: 042
     Dates: start: 201505
  11. 5-FU [Concomitant]
     Active Substance: FLUOROURACIL
     Indication: ADENOCARCINOMA PANCREAS
     Dosage: ONE BOLUS OF 675 MG THEN IN CONTINUOUS WITHIN 44 HOURS / 4050 MG
     Route: 040
     Dates: start: 201505
  12. ATORVASTATIN [Concomitant]
     Active Substance: ATORVASTATIN
     Dosage: USUAL TREATMENT
     Route: 065
  13. KARDEGIC [Concomitant]
     Active Substance: ASPIRIN LYSINE
     Dosage: USUAL TREATMENT
     Route: 065

REACTIONS (2)
  - Muscle spasms [Recovered/Resolved]
  - Tonic convulsion [Recovered/Resolved]

NARRATIVE: CASE EVENT DATE: 20150723
